FAERS Safety Report 7073984-3 (Version None)
Quarter: 2010Q4

REPORT INFORMATION
  Report Type: 
  Country: None (occurrence: None)
  Receive Date: 20101028
  Receipt Date: 20101028
  Transmission Date: 20110411
  Serious: No
  Sender: FDA-Public Use
  Company Number: None

PATIENT
  Age: 2 Year
  Sex: Male
  Weight: 11.3399 kg

DRUGS (1)
  1. HYLAND'S TEETHING TABLETS STANDARD HOMEOPATHIC COMPANY [Suspect]

REACTIONS (2)
  - ACCIDENTAL EXPOSURE [None]
  - PRODUCT PACKAGING ISSUE [None]
